FAERS Safety Report 10922079 (Version 6)
Quarter: 2017Q3

REPORT INFORMATION
  Report Type: Spontaneous
  Country: US (occurrence: US)
  Receive Date: 20150317
  Receipt Date: 20170721
  Transmission Date: 20171127
  Serious: Yes (Other)
  Sender: FDA-Public Use
  Company Number: US-PFIZER INC-2015091006

PATIENT
  Age: 13 Year
  Sex: Male
  Weight: 35.37 kg

DRUGS (46)
  1. GENOTROPIN [Suspect]
     Active Substance: SOMATROPIN
     Indication: GROWTH RETARDATION
     Dosage: 1.2 MG, DAILY (NIGHTLY)
     Route: 058
     Dates: start: 201411
  2. FOLIC ACID. [Concomitant]
     Active Substance: FOLIC ACID
     Dosage: 1 MG, UNK
  3. OMEPRAZOLE. [Concomitant]
     Active Substance: OMEPRAZOLE
     Dosage: 1 DF, DAILY(MAY TAKE TWICE DAILY IF NEEDED PER PATIENT)
     Route: 048
  4. PRAZOSIN. [Concomitant]
     Active Substance: PRAZOSIN
     Dosage: 1 MG, 2X/DAY
     Route: 048
  5. ZINC SULFATE [Concomitant]
     Active Substance: ZINC SULFATE\ZINC SULFATE ANHYDROUS
     Dosage: 1.36 ML, DAILY
     Route: 048
  6. GENOTROPIN [Suspect]
     Active Substance: SOMATROPIN
     Dosage: 2 MG, DAILY (DAILY AT BEDTIME)
     Route: 058
  7. GENOTROPIN [Suspect]
     Active Substance: SOMATROPIN
     Dosage: 12 MG, UNK
     Route: 058
  8. ASPIRIN. [Concomitant]
     Active Substance: ASPIRIN
     Dosage: 325 MG, UNK
  9. DIPHENHYDRAMINE HCL [Concomitant]
     Active Substance: DIPHENHYDRAMINE HYDROCHLORIDE
     Dosage: 25 MG, UNK
  10. MEGESTROL [Concomitant]
     Active Substance: MEGESTROL
     Dosage: 40 MG, UNK
  11. AMITRIPTYLINE [Concomitant]
     Active Substance: AMITRIPTYLINE
     Dosage: 10 MG, 1X/DAY
     Route: 048
  12. ALBUTEROL. [Concomitant]
     Active Substance: ALBUTEROL
     Dosage: UNK UNK, 4X/DAY [2 PUFF] [INHALATION]
  13. SIROLIMUS. [Concomitant]
     Active Substance: SIROLIMUS
     Dosage: 0.9 ML, 2X/DAY
     Route: 048
  14. MORPHINE [Concomitant]
     Active Substance: MORPHINE
     Indication: PAIN
     Dosage: 1.5 ML, AS NEEDED [EVERY 4 HOURS AS NEEDED ]
     Route: 042
  15. MORPHINE [Concomitant]
     Active Substance: MORPHINE
     Dosage: 15 MG, AS NEEDED [EVERY 4 HOURS ]
     Route: 048
  16. MEGACE [Concomitant]
     Active Substance: MEGESTROL ACETATE
     Dosage: 3 ML, 2X/DAY
     Route: 048
  17. GENOTROPIN [Suspect]
     Active Substance: SOMATROPIN
     Dosage: 2 MG, DAILY (DAILY AT BEDTIME)
     Route: 058
  18. VALCYTE [Concomitant]
     Active Substance: VALGANCICLOVIR HYDROCHLORIDE
     Dosage: 450 MG, UNK
  19. LORATADINE. [Concomitant]
     Active Substance: LORATADINE
     Dosage: 10 MG, UNK
  20. PREDNISONE. [Concomitant]
     Active Substance: PREDNISONE
     Dosage: 10 MG, 2X/DAY
     Route: 048
  21. SULFASALAZINE. [Concomitant]
     Active Substance: SULFASALAZINE
     Dosage: 500 MG, UNK
  22. VITAMIN D2 [Concomitant]
     Active Substance: ERGOCALCIFEROL
     Dosage: 50000 IU, UNK
  23. MORPHINE [Concomitant]
     Active Substance: MORPHINE
     Dosage: 45 MG, 2X/DAY [15 MG, 3 TAB, EVERY 12 HOURS]
     Route: 048
  24. LOSARTAN. [Concomitant]
     Active Substance: LOSARTAN
     Dosage: 75 MG, DAILY [TAKE 2 TABS IN AM AND 1 TAB IN PM DAILY ]
     Route: 048
  25. LOSARTAN. [Concomitant]
     Active Substance: LOSARTAN
     Dosage: UNK
     Route: 048
  26. GENOTROPIN [Suspect]
     Active Substance: SOMATROPIN
     Indication: GROWTH HORMONE DEFICIENCY
     Dosage: 1.6 MG, DAILY
     Route: 058
     Dates: start: 20150206
  27. ADVAIR DISKUS [Concomitant]
     Active Substance: FLUTICASONE PROPIONATE\SALMETEROL XINAFOATE
     Dosage: UNK
  28. PREDNISONE. [Concomitant]
     Active Substance: PREDNISONE
     Dosage: 10 MG, UNK
  29. SYMBICORT [Concomitant]
     Active Substance: BUDESONIDE\FORMOTEROL FUMARATE DIHYDRATE
     Dosage: UNK, 2X/DAY [2 PUFF]
     Route: 055
  30. MYCOPHENOLATE MOFETIL. [Concomitant]
     Active Substance: MYCOPHENOLATE MOFETIL
     Dosage: 50 MG, UNK
  31. SODIUM CHLORIDE. [Concomitant]
     Active Substance: SODIUM CHLORIDE
     Dosage: 1000 MG, UNK
  32. SODIUM CHLORIDE. [Concomitant]
     Active Substance: SODIUM CHLORIDE
     Dosage: 350 ML, 1X/DAY (EACH BEDTIME)
     Route: 042
  33. ZINC 15 [Concomitant]
     Dosage: 66 MG, UNK
  34. ENTOCORT [Concomitant]
     Active Substance: BUDESONIDE
     Dosage: 6 MG, DAILY
     Route: 048
  35. ZOLPIDEM [Concomitant]
     Active Substance: ZOLPIDEM\ZOLPIDEM TARTRATE
     Indication: SLEEP DISORDER
     Dosage: 10 MG, AS NEEDED [EACH BED TIME AS NEEDED ]
     Route: 048
  36. TRANEXAMIC ACID. [Concomitant]
     Active Substance: TRANEXAMIC ACID
     Dosage: 1300 MG, 2X/DAY
     Route: 048
  37. CLINDAMYCIN HCL [Concomitant]
     Active Substance: CLINDAMYCIN HYDROCHLORIDE
     Dosage: 150 MG, UNK
  38. METRONIDAZOLE. [Concomitant]
     Active Substance: METRONIDAZOLE
     Dosage: 250 MG, UNK
  39. OMEPRAZOLE. [Concomitant]
     Active Substance: OMEPRAZOLE
     Dosage: 20 MG, UNK
  40. POTASSIUM CHLORIDE. [Concomitant]
     Active Substance: POTASSIUM CHLORIDE
     Dosage: 80 MEQ, 2X/DAY
     Route: 048
  41. GABAPENTIN. [Concomitant]
     Active Substance: GABAPENTIN
     Dosage: 200 MG, 3X/DAY
     Route: 048
  42. GABAPENTIN. [Concomitant]
     Active Substance: GABAPENTIN
     Dosage: 700 MG, DAILY [TAKE 2 CAPS IN MORNING AND 2 CAPS IN AFTERNOON, AND 3 CAPS (300MG) IN THE EVENING]
     Route: 048
  43. MEGESTROL [Concomitant]
     Active Substance: MEGESTROL
     Dosage: 3 ML, 2X/DAY
     Route: 048
  44. VITAMIN D2 [Concomitant]
     Active Substance: ERGOCALCIFEROL
     Dosage: 1.25 MG, 2X/DAY
     Route: 048
  45. ALBUTEROL. [Concomitant]
     Active Substance: ALBUTEROL
     Indication: WHEEZING
     Dosage: 3 ML, AS NEEDED (EVERY 6 HOURS)
  46. CANASA [Concomitant]
     Active Substance: MESALAMINE
     Dosage: 1000 MG, 1X/DAY (EACH BEDTIME)
     Route: 054

REACTIONS (5)
  - Drug ineffective [Unknown]
  - Gastrointestinal disorder [Unknown]
  - Bone marrow disorder [Unknown]
  - Viral infection [Unknown]
  - Diarrhoea [Unknown]
